FAERS Safety Report 9852372 (Version 1)
Quarter: 2014Q1

REPORT INFORMATION
  Report Type: Spontaneous
  Country: JP (occurrence: JP)
  Receive Date: 20140129
  Receipt Date: 20140129
  Transmission Date: 20141002
  Serious: Yes (Other)
  Sender: FDA-Public Use
  Company Number: JP-ASTELLAS-2014JP000403

PATIENT
  Age: 63 Year
  Sex: Male

DRUGS (2)
  1. FUNGUARD [Suspect]
     Indication: FUNGAL INFECTION
     Dosage: 150 MG, UNKNOWN/D
     Route: 042
     Dates: start: 20131220, end: 20131226
  2. ZOSYN [Concomitant]
     Dosage: 13.5 G, UNKNOWN/D
     Route: 042
     Dates: start: 20131212

REACTIONS (3)
  - Hypokalaemia [Recovered/Resolved]
  - Diabetes insipidus [Recovered/Resolved]
  - Hypernatraemia [Recovered/Resolved]
